FAERS Safety Report 9090600 (Version 1)
Quarter: 2013Q1

REPORT INFORMATION
  Report Type: Spontaneous
  Country: DE (occurrence: DE)
  Receive Date: 20130201
  Receipt Date: 20130201
  Transmission Date: 20140127
  Serious: Yes (Hospitalization)
  Sender: FDA-Public Use
  Company Number: DE-ASTRAZENECA-2013SE04917

PATIENT
  Age: 49 Year
  Sex: Male

DRUGS (3)
  1. ZOLMITRIPTAN [Suspect]
     Indication: MIGRAINE
  2. FROVATRIPTAN [Suspect]
     Indication: MIGRAINE
  3. SUMATRIPTAN [Suspect]
     Indication: MIGRAINE

REACTIONS (4)
  - Suicidal ideation [Recovered/Resolved]
  - Major depression [Recovered/Resolved]
  - Drug dose omission [Unknown]
  - Intentional drug misuse [Unknown]
